FAERS Safety Report 10196706 (Version 1)
Quarter: 2014Q2

REPORT INFORMATION
  Report Type: Spontaneous
  Country: FR (occurrence: FR)
  Receive Date: 20140527
  Receipt Date: 20140527
  Transmission Date: 20141212
  Serious: Yes (Life-Threatening, Hospitalization)
  Sender: FDA-Public Use
  Company Number: FR-ASTRAZENECA-2014SE35595

PATIENT
  Age: 64 Year
  Sex: Male

DRUGS (2)
  1. CARBOCAINE [Suspect]
     Indication: LOCAL ANAESTHESIA
     Dosage: ONCE/SINGLE ADMINISTRATION
     Route: 053
     Dates: start: 20140424, end: 20140424
  2. ROPIVACAINE [Suspect]
     Indication: LOCAL ANAESTHESIA
     Dosage: ONCE/SINGLE ADMINISTRATION
     Route: 053
     Dates: start: 20140424, end: 20140424

REACTIONS (1)
  - Cardio-respiratory arrest [Recovered/Resolved]
